FAERS Safety Report 6402594-3 (Version None)
Quarter: 2009Q4

REPORT INFORMATION
  Report Type: 
  Country: None (occurrence: None)
  Receive Date: 20091009
  Receipt Date: 20090930
  Transmission Date: 20100525
  Serious: Yes (Hospitalization, Other)
  Sender: FDA-Public Use
  Company Number: ADR34802009

PATIENT
  Age: 43 Year
  Sex: Female

DRUGS (12)
  1. CIPROFLOXACIN [Suspect]
     Dosage: 1 G, ORAL, 1.5 G
     Route: 048
     Dates: start: 20061229, end: 20061231
  2. CIPROFLOXACIN [Suspect]
     Dosage: 1 G, ORAL, 1.5 G
     Route: 048
     Dates: start: 20070111, end: 20070212
  3. ACYCLOVIR [Concomitant]
  4. CEFTAZIDINE [Concomitant]
  5. TRETINOIN [Concomitant]
  6. CASPOFUNGIN [Concomitant]
  7. DILTIAZEM [Concomitant]
  8. CLOMIPRAMINE [Concomitant]
  9. CANDESARTAN CILEXETIL [Concomitant]
  10. ALLOPURINOL [Concomitant]
  11. METRONIDAZOLE [Concomitant]
  12. TEICOPLANIN [Concomitant]

REACTIONS (5)
  - HYPOPERFUSION [None]
  - HYPOVOLAEMIA [None]
  - RENAL FAILURE ACUTE [None]
  - SEPSIS [None]
  - TUBULOINTERSTITIAL NEPHRITIS [None]
